FAERS Safety Report 17716679 (Version 1)
Quarter: 2020Q2

REPORT INFORMATION
  Report Type: Spontaneous
  Country: FR (occurrence: FR)
  Receive Date: 20200428
  Receipt Date: 20200428
  Transmission Date: 20200714
  Serious: Yes (Other)
  Sender: FDA-Public Use
  Company Number: FR-ACCORD-179743

PATIENT
  Age: 36 Year
  Sex: Female
  Weight: 50 kg

DRUGS (1)
  1. METHOTREXATE. [Suspect]
     Active Substance: METHOTREXATE
     Indication: ALOPECIA UNIVERSALIS
     Route: 048
     Dates: start: 20190514

REACTIONS (2)
  - Hallucination [Recovering/Resolving]
  - Nightmare [Recovering/Resolving]
